FAERS Safety Report 24587055 (Version 2)
Quarter: 2024Q4

REPORT INFORMATION
  Report Type: Report from Study
  Country: US (occurrence: US)
  Receive Date: 20241107
  Receipt Date: 20241209
  Transmission Date: 20250115
  Serious: Yes (Other)
  Sender: ABBVIE
  Company Number: US-ABBVIE-5986522

PATIENT
  Age: 51 Year
  Sex: Female

DRUGS (2)
  1. RINVOQ [Suspect]
     Active Substance: UPADACITINIB
     Indication: Rheumatoid arthritis
     Dosage: END DATE: 2024
     Route: 048
     Dates: start: 20240830
  2. RINVOQ [Suspect]
     Active Substance: UPADACITINIB
     Indication: Rheumatoid arthritis
     Dosage: START DATE: 2024
     Route: 048

REACTIONS (2)
  - Oral surgery [Recovered/Resolved]
  - Oral surgery [Recovering/Resolving]

NARRATIVE: CASE EVENT DATE: 20241029
